FAERS Safety Report 4447577-8 (Version None)
Quarter: 2004Q3

REPORT INFORMATION
  Report Type: 
  Country: None (occurrence: None)
  Receive Date: 20040812
  Receipt Date: 20040624
  Transmission Date: 20050211
  Serious: No
  Sender: FDA-Public Use
  Company Number: USA040671350

PATIENT
  Sex: Male

DRUGS (1)
  1. TADALAFIL [Suspect]

REACTIONS (1)
  - ABDOMINAL PAIN [None]
